FAERS Safety Report 4480366-7 (Version None)
Quarter: 2004Q4

REPORT INFORMATION
  Report Type: 
  Country: None (occurrence: None)
  Receive Date: 20041018
  Receipt Date: 20041002
  Transmission Date: 20050328
  Serious: Yes (Hospitalization)
  Sender: FDA-Public Use
  Company Number: 2004-CN-00363CN

PATIENT
  Age: 75 Year
  Sex: Male

DRUGS (3)
  1. MICARDIS [Suspect]
     Indication: HYPERTENSION
     Dosage: 80 MG (80 MG) PO
     Route: 048
     Dates: start: 20040319
  2. NORVASC [Concomitant]
  3. NOVASEN (ACETYLSALICYIC ACID) (TA) [Concomitant]

REACTIONS (1)
  - CEREBROVASCULAR ACCIDENT [None]
